FAERS Safety Report 6349202-8 (Version None)
Quarter: 2009Q3

REPORT INFORMATION
  Report Type: 
  Country: None (occurrence: None)
  Receive Date: 20090911
  Receipt Date: 20090831
  Transmission Date: 20100115
  Serious: Yes (Other)
  Sender: FDA-Public Use
  Company Number: US-JNJFOC-20090900427

PATIENT
  Sex: Female
  Weight: 79.38 kg

DRUGS (6)
  1. REMICADE [Suspect]
     Indication: PSORIASIS
     Route: 042
  2. REMICADE [Suspect]
     Indication: PSORIATIC ARTHROPATHY
     Route: 042
  3. HUMIRA [Suspect]
     Indication: PSORIASIS
     Route: 058
  4. HUMIRA [Suspect]
     Indication: PSORIATIC ARTHROPATHY
     Route: 058
  5. FOLIC ACID [Concomitant]
     Indication: PSORIASIS
     Route: 048
  6. FOLIC ACID [Concomitant]
     Indication: PSORIATIC ARTHROPATHY
     Route: 048

REACTIONS (8)
  - ABASIA [None]
  - BLOOD PRESSURE INCREASED [None]
  - HAND DEFORMITY [None]
  - HEADACHE [None]
  - HYPOKINESIA [None]
  - OEDEMA PERIPHERAL [None]
  - SYNCOPE [None]
  - VERTIGO [None]
